FAERS Safety Report 9548809 (Version 1)
Quarter: 2013Q3

REPORT INFORMATION
  Report Type: Spontaneous
  Country: US (occurrence: None)
  Receive Date: 20130923
  Receipt Date: 20130923
  Transmission Date: 20140515
  Serious: Yes (Disabling)
  Sender: FDA-Public Use
  Company Number: None

PATIENT
  Age: 50 Year
  Sex: Male
  Weight: 92.99 kg

DRUGS (1)
  1. VICTOZA [Suspect]
     Indication: DIABETES MELLITUS
     Dosage: UNITS ONCE DAILY GIVEN INTO? UNDER THE SKIN

REACTIONS (5)
  - Dyspepsia [None]
  - Dyspepsia [None]
  - Nausea [None]
  - Vomiting [None]
  - Impaired gastric emptying [None]
